FAERS Safety Report 13553651 (Version 1)
Quarter: 2017Q2

REPORT INFORMATION
  Report Type: Spontaneous
  Country: KR (occurrence: KR)
  Receive Date: 20170517
  Receipt Date: 20170517
  Transmission Date: 20170830
  Serious: Yes (Other)
  Sender: FDA-Public Use
  Company Number: KR-BAYER-2017-085746

PATIENT
  Age: 41 Year
  Sex: Female

DRUGS (2)
  1. NEXAVAR [Suspect]
     Active Substance: SORAFENIB
     Indication: THYROID CANCER
     Dosage: 400 MG, BID
  2. NEXAVAR [Suspect]
     Active Substance: SORAFENIB
     Indication: PAPILLARY THYROID CANCER

REACTIONS (4)
  - Palmar-plantar erythrodysaesthesia syndrome [Recovering/Resolving]
  - Blood triglycerides increased [None]
  - Thyroid cancer [None]
  - Metastases to spine [None]
